FAERS Safety Report 9259476 (Version 1)
Quarter: 2013Q2

REPORT INFORMATION
  Report Type: Spontaneous
  Country: SE (occurrence: SE)
  Receive Date: 20130428
  Receipt Date: 20130428
  Transmission Date: 20140414
  Serious: Yes (Death)
  Sender: FDA-Public Use
  Company Number: SE-ROXANE LABORATORIES, INC.-2013-RO-00596RO

PATIENT
  Age: 28 Year
  Sex: Female

DRUGS (6)
  1. BUPRENORPHINE HYDROCHLORIDE [Suspect]
  2. FENAZON [Suspect]
  3. PROMETAZINE [Suspect]
  4. KLOMIPRAMIN [Suspect]
  5. ACETAMINOPHEN [Suspect]
  6. AMPHETAMINE [Suspect]

REACTIONS (1)
  - Overdose [Fatal]
